FAERS Safety Report 17311388 (Version 1)
Quarter: 2020Q1

REPORT INFORMATION
  Report Type: Spontaneous
  Country: US (occurrence: US)
  Receive Date: 20200123
  Receipt Date: 20200123
  Transmission Date: 20200409
  Serious: No
  Sender: FDA-Public Use
  Company Number: US-ROCHE-2392583

PATIENT
  Sex: Female

DRUGS (1)
  1. RITUXAN [Suspect]
     Active Substance: RITUXIMAB
     Indication: CARDIAC SARCOIDOSIS
     Dosage: CYCLE 2 WEEKS APART EVERY 6 MONTHS ?ALSO RECEIVED ON 31/DEC/2018 AND JAN/2019
     Route: 042
     Dates: start: 201806

REACTIONS (3)
  - No adverse event [Unknown]
  - Off label use [Unknown]
  - Intentional product use issue [Unknown]
